FAERS Safety Report 17611930 (Version 1)
Quarter: 2020Q2

REPORT INFORMATION
  Report Type: Spontaneous
  Country: GB (occurrence: GB)
  Receive Date: 20200401
  Receipt Date: 20200401
  Transmission Date: 20200713
  Serious: Yes (Other)
  Sender: FDA-Public Use
  Company Number: GB-ALLERGAN-2013768US

PATIENT
  Sex: Female
  Weight: 58.06 kg

DRUGS (2)
  1. KLIOVANCE [Concomitant]
     Active Substance: ESTRADIOL\NORETHINDRONE ACETATE
     Indication: PRODUCT USED FOR UNKNOWN INDICATION
     Route: 065
  2. CITALOPRAM HYDROBROMIDE - BP [Suspect]
     Active Substance: CITALOPRAM HYDROBROMIDE
     Indication: STRESS
     Dosage: 10 MG
     Route: 048
     Dates: start: 20191001, end: 20200224

REACTIONS (6)
  - Toothache [Unknown]
  - Condition aggravated [Unknown]
  - Hyperaesthesia teeth [Unknown]
  - Bruxism [Unknown]
  - Product use in unapproved indication [Unknown]
  - Trigeminal neuralgia [Not Recovered/Not Resolved]

NARRATIVE: CASE EVENT DATE: 20191101
